FAERS Safety Report 6074952-0 (Version None)
Quarter: 2009Q1

REPORT INFORMATION
  Report Type: 
  Country: None (occurrence: None)
  Receive Date: 20090212
  Receipt Date: 20090112
  Transmission Date: 20090719
  Serious: No
  Sender: FDA-Public Use
  Company Number: US-BAYER-200837010NA

PATIENT
  Age: 30 Year
  Sex: Female
  Weight: 73 kg

DRUGS (1)
  1. MIRENA [Suspect]
     Indication: CONTRACEPTION
     Route: 015
     Dates: start: 20040401

REACTIONS (8)
  - ABDOMINAL PAIN [None]
  - AMENORRHOEA [None]
  - BENIGN BREAST NEOPLASM [None]
  - BREAST PAIN [None]
  - OVARIAN CYST [None]
  - PAPILLOMA VIRAL INFECTION [None]
  - VAGINAL HAEMORRHAGE [None]
  - WEIGHT DECREASED [None]
